FAERS Safety Report 8804986 (Version 1)
Quarter: 2012Q4

REPORT INFORMATION
  Report Type: 
  Country: US (occurrence: US)
  Receive Date: 20120924
  Receipt Date: 20120924
  Transmission Date: 20130627
  Serious: Yes (Other)
  Sender: FDA-Public Use
  Company Number: US-ROCHE-1124147

PATIENT
  Sex: Female

DRUGS (1)
  1. RANIBIZUMAB [Suspect]
     Indication: AGE-RELATED MACULAR DEGENERATION

REACTIONS (6)
  - Eye haemorrhage [Unknown]
  - Atrial fibrillation [Unknown]
  - Diabetic neuropathy [Unknown]
  - Protein total increased [Unknown]
  - Vaginal haemorrhage [Unknown]
  - Urinary tract infection [Unknown]
